FAERS Safety Report 25205209 (Version 1)
Quarter: 2025Q2

REPORT INFORMATION
  Report Type: Spontaneous
  Country: CN (occurrence: CN)
  Receive Date: 20250417
  Receipt Date: 20250417
  Transmission Date: 20250716
  Serious: Yes (Other)
  Sender: AMGEN
  Company Number: CN-AMGEN-CHNSP2025068649

PATIENT
  Age: 68 Year
  Sex: Male

DRUGS (8)
  1. PEGFILGRASTIM [Suspect]
     Active Substance: PEGFILGRASTIM
     Indication: Prophylaxis
     Dosage: 3 MILLIGRAM, QD (ON DAYN 1, THEN EVERY 3RD CYCLE)
     Route: 040
  2. PEGFILGRASTIM [Suspect]
     Active Substance: PEGFILGRASTIM
     Indication: Myelosuppression
  3. ETOPOSIDE [Concomitant]
     Active Substance: ETOPOSIDE
     Indication: Small cell lung cancer metastatic
     Dosage: 100 MILLIGRAM, QD (FOR 5 DAYS), Q3WK (6 CYCLES) (EVERY 21 DAYS) (4 ADDITIONAL CYCLES AS MT)
     Route: 040
  4. CARBOPLATIN [Concomitant]
     Active Substance: CARBOPLATIN
     Indication: Small cell lung cancer metastatic
     Route: 040
  5. CATEQUENTINIB [Concomitant]
     Active Substance: CATEQUENTINIB
     Indication: Small cell lung cancer metastatic
     Dosage: 8 MILLIGRAM, QD (MT FOR 14 DAYS  IN A 21-DAY CYCLE)
     Route: 048
  6. PACLITAXEL [Concomitant]
     Active Substance: PACLITAXEL
     Indication: Small cell lung cancer metastatic
     Route: 040
  7. DURVALUMAB [Concomitant]
     Active Substance: DURVALUMAB
     Indication: Small cell lung cancer metastatic
     Dosage: 1500 MILLIGRAM (SINGLE DOSE ON DAY 1),Q3WK (6 CYCLES) (AFTER DAY 1, THEN EVERY 21 DAYS)
  8. CISPLATIN [Concomitant]
     Active Substance: CISPLATIN
     Indication: Small cell lung cancer metastatic
     Route: 040

REACTIONS (3)
  - Radiation pneumonitis [Recovered/Resolved]
  - Small cell lung cancer metastatic [Recovered/Resolved]
  - Myelosuppression [Recovered/Resolved]
